FAERS Safety Report 23135926 (Version 1)
Quarter: 2023Q4

REPORT INFORMATION
  Report Type: Spontaneous
  Country: FR (occurrence: FR)
  Receive Date: 20231101
  Receipt Date: 20231101
  Transmission Date: 20240110
  Serious: Yes (Other)
  Sender: FDA-Public Use
  Company Number: None

PATIENT
  Age: 71 Year
  Sex: Male

DRUGS (4)
  1. POLYETHYLENE GLYCOLS [Suspect]
     Active Substance: POLYETHYLENE GLYCOLS
     Indication: Constipation
     Dates: start: 20230308, end: 20230329
  2. PREDNISOLONE [Suspect]
     Active Substance: PREDNISOLONE
     Indication: Sciatica
     Dates: start: 20230321, end: 20230329
  3. PREGABALIN [Suspect]
     Active Substance: PREGABALIN
     Indication: Sciatica
     Dosage: 150 MILLIGRAM DAILY; 75MG 2 TIMES A DAY
     Dates: start: 20230320, end: 20230329
  4. IBUPROFEN [Suspect]
     Active Substance: IBUPROFEN
     Indication: Sciatica
     Dates: start: 20230310, end: 20230314

REACTIONS (1)
  - Rash maculo-papular [Recovered/Resolved]

NARRATIVE: CASE EVENT DATE: 20230329
